FAERS Safety Report 5796511-7 (Version None)
Quarter: 2008Q3

REPORT INFORMATION
  Report Type: 
  Country: None (occurrence: None)
  Receive Date: 20080701
  Receipt Date: 20080627
  Transmission Date: 20090109
  Serious: Yes (Life-Threatening, Hospitalization)
  Sender: FDA-Public Use
  Company Number: B0518833B

PATIENT
  Age: 77 Year
  Sex: Female

DRUGS (2)
  1. TOPOTECAN [Suspect]
     Dosage: 1.4MG PER DAY
     Route: 042
     Dates: start: 20080409, end: 20080411
  2. CARBOPLATIN [Suspect]
     Dosage: 410MG PER DAY
     Route: 042
     Dates: start: 20080411, end: 20080411

REACTIONS (1)
  - ILEUS [None]
